FAERS Safety Report 4450177-7 (Version None)
Quarter: 2004Q3

REPORT INFORMATION
  Report Type: 
  Country: None (occurrence: None)
  Receive Date: 20040914
  Receipt Date: 20040902
  Transmission Date: 20050211
  Serious: Yes (Other)
  Sender: FDA-Public Use
  Company Number: HQWYE100209AUG04

PATIENT
  Age: 41 Year
  Sex: Female
  Weight: 49.49 kg

DRUGS (14)
  1. EFFEXOR XR [Suspect]
     Indication: DEPRESSION
     Dosage: SEE IMAGE
     Route: 048
     Dates: start: 19980101, end: 19990101
  2. EFFEXOR XR [Suspect]
     Indication: DEPRESSION
     Dosage: SEE IMAGE
     Route: 048
     Dates: start: 19990101, end: 20030101
  3. EFFEXOR XR [Suspect]
     Indication: DEPRESSION
     Dosage: SEE IMAGE
     Route: 048
     Dates: start: 20030101, end: 20040601
  4. EFFEXOR XR [Suspect]
     Indication: DEPRESSION
     Dosage: SEE IMAGE
     Route: 048
     Dates: start: 20040601, end: 20040803
  5. EFFEXOR XR [Suspect]
     Indication: DEPRESSION
     Dosage: SEE IMAGE
     Route: 048
     Dates: start: 20030101
  6. IBUPROFEN [Suspect]
     Indication: PAIN
     Dosage: AS NEEDED
     Dates: start: 20030101
  7. TRAZODONE HCL [Concomitant]
  8. CUPRIMINE [Concomitant]
  9. UROCIT-K (POTASSIUM CITRATE) [Concomitant]
  10. SODIUM BICARBONATE IN PLASTIC CONTAINER [Concomitant]
  11. CAPTOPRIL [Concomitant]
  12. PHENERGAN [Concomitant]
  13. CLONAZEPAM [Concomitant]
  14. WELLBUTRIN [Concomitant]

REACTIONS (1)
  - ERYTHEMA ELEVATUM DIUTINUM [None]
